FAERS Safety Report 20839155 (Version 1)
Quarter: 2022Q2

REPORT INFORMATION
  Report Type: Report from Study
  Country: GR (occurrence: GR)
  Receive Date: 20220517
  Receipt Date: 20220517
  Transmission Date: 20220720
  Serious: Yes (Other)
  Sender: FDA-Public Use
  Company Number: GR-ABBVIE-22K-066-4394669-00

PATIENT

DRUGS (3)
  1. VENETOCLAX [Suspect]
     Active Substance: VENETOCLAX
     Indication: Acute myeloid leukaemia
     Route: 048
     Dates: start: 202112
  2. VENETOCLAX [Suspect]
     Active Substance: VENETOCLAX
     Route: 048
  3. FLUCONAZOLE [Concomitant]
     Active Substance: FLUCONAZOLE
     Indication: Antifungal treatment

REACTIONS (4)
  - Aspiration bone marrow [Unknown]
  - Red blood cell transfusion [Unknown]
  - Platelet transfusion [Unknown]
  - Therapeutic product effect incomplete [Unknown]

NARRATIVE: CASE EVENT DATE: 20220301
